FAERS Safety Report 10581190 (Version 1)
Quarter: 2014Q4

REPORT INFORMATION
  Report Type: Spontaneous
  Country: CA (occurrence: None)
  Receive Date: 20141110
  Receipt Date: 20141110
  Transmission Date: 20150529
  Serious: Yes (Hospitalization)
  Sender: FDA-Public Use
  Company Number: GO-2014-000001

PATIENT
  Age: 84 Year
  Sex: Male

DRUGS (8)
  1. HYDROCHLOROTHIAZIDE (HYDROCHLOROTHIAZIDE) [Suspect]
     Active Substance: HYDROCHLOROTHIAZIDE
     Indication: HYPERTENSION
  2. PANTOPRAZOLE (PANTOPRAZOLE) [Suspect]
     Active Substance: PANTOPRAZOLE SODIUM
     Indication: GASTROOESOPHAGEAL REFLUX DISEASE
  3. ATORVASTATIN [Concomitant]
     Active Substance: ATORVASTATIN
  4. METFORMIN [Concomitant]
     Active Substance: METFORMIN HYDROCHLORIDE
  5. AMLODIPINE [Concomitant]
     Active Substance: AMLODIPINE BESYLATE
  6. METOPROLOL [Concomitant]
     Active Substance: METOPROLOL
  7. FINASTERIDE. [Concomitant]
     Active Substance: FINASTERIDE
  8. ASPIRIN(ACETYLSALICYLIC ACID) [Concomitant]
     Active Substance: ASPIRIN

REACTIONS (18)
  - Bone pain [None]
  - Hypomagnesaemia [None]
  - Muscle spasms [None]
  - Trousseau^s sign [None]
  - Gastroenteritis viral [None]
  - Fatigue [None]
  - Depressed mood [None]
  - Electrolyte imbalance [None]
  - Decreased activity [None]
  - Diarrhoea [None]
  - Tremor [None]
  - Hypokalaemia [None]
  - Chvostek^s sign [None]
  - Malabsorption [None]
  - Dehydration [None]
  - Hypocalcaemia [None]
  - Arthralgia [None]
  - Orthostatic hypotension [None]
